FAERS Safety Report 6425200-0 (Version None)
Quarter: 2009Q4

REPORT INFORMATION
  Report Type: 
  Country: None (occurrence: None)
  Receive Date: 20091102
  Receipt Date: 20091102
  Transmission Date: 20100525
  Serious: Yes (Hospitalization)
  Sender: FDA-Public Use
  Company Number: None

PATIENT
  Sex: Female
  Weight: 56.4 kg

DRUGS (3)
  1. BEVACIZUMAB (RHUMAB VEGF) [Suspect]
     Dosage: 845 MG
     Dates: end: 20090917
  2. SPIRONOLACTONE/HYDROCHLOROTHIAZIDE [Concomitant]
  3. COREG [Concomitant]

REACTIONS (3)
  - EJECTION FRACTION DECREASED [None]
  - FALL [None]
  - SYNCOPE [None]
